FAERS Safety Report 4314117-3 (Version None)
Quarter: 2004Q1

REPORT INFORMATION
  Report Type: 
  Country: None (occurrence: None)
  Receive Date: 20040302
  Receipt Date: 20031205
  Transmission Date: 20041129
  Serious: No
  Sender: FDA-Public Use
  Company Number: 701120

PATIENT
  Age: 41 Year
  Sex: Female
  Weight: 54.4316 kg

DRUGS (1)
  1. AMEVIVE [Suspect]
     Indication: PSORIASIS
     Dosage: 15 MG QW IM
     Route: 030
     Dates: start: 20030701

REACTIONS (5)
  - CD4 LYMPHOCYTES DECREASED [None]
  - DIZZINESS [None]
  - DRUG INEFFECTIVE [None]
  - PSORIASIS [None]
  - SKIN ULCER [None]
